FAERS Safety Report 13966703 (Version 1)
Quarter: 2017Q3

REPORT INFORMATION
  Report Type: Spontaneous
  Country: US (occurrence: US)
  Receive Date: 20170913
  Receipt Date: 20170913
  Transmission Date: 20171128
  Serious: Yes (Other)
  Sender: FDA-Public Use
  Company Number: None

PATIENT
  Age: 47 Year
  Sex: Female
  Weight: 99.45 kg

DRUGS (6)
  1. LEVOTHYROXINE. [Concomitant]
     Active Substance: LEVOTHYROXINE
  2. MORPHINE SULF [Concomitant]
     Active Substance: MORPHINE SULFATE
  3. TYLENOL [Concomitant]
     Active Substance: ACETAMINOPHEN
  4. ARMODAFINIL 250MG TABLETS SUBSTITUTED FOR NUVGIL 250MG TABLET [Suspect]
     Active Substance: ARMODAFINIL
     Indication: SLEEP DISORDER
     Dosage: ?          QUANTITY:30 TABLET(S);?
     Route: 048
     Dates: start: 20170807, end: 20170808
  5. METFORMIN [Concomitant]
     Active Substance: METFORMIN HYDROCHLORIDE
  6. SERTRALINE HCL [Concomitant]
     Active Substance: SERTRALINE HYDROCHLORIDE

REACTIONS (4)
  - Dehydration [None]
  - Bone pain [None]
  - Pain [None]
  - Product substitution issue [None]

NARRATIVE: CASE EVENT DATE: 20170617
